FAERS Safety Report 9671722 (Version 1)
Quarter: 2013Q4

REPORT INFORMATION
  Report Type: Spontaneous
  Country: US (occurrence: None)
  Receive Date: 20131105
  Receipt Date: 20131105
  Transmission Date: 20140711
  Serious: Yes (Other)
  Sender: FDA-Public Use
  Company Number: None

PATIENT
  Age: 57 Year
  Sex: Male
  Weight: 81 kg

DRUGS (14)
  1. VANCOMYCIN [Suspect]
     Indication: INFECTION
     Route: 042
     Dates: start: 20131001, end: 20131003
  2. QUETIAPINE [Concomitant]
  3. CARBIDOPA/LEVODOPA [Concomitant]
  4. ENTACAPONE [Concomitant]
  5. LACTOBACILLUS [Concomitant]
  6. PAROXETINE [Concomitant]
  7. SENNA [Concomitant]
  8. DOCUSATE [Concomitant]
  9. SIMVASTATIN [Concomitant]
  10. AMANTADINE [Concomitant]
  11. TAMSULOSIN [Concomitant]
  12. TRAMADOL [Concomitant]
  13. ENALAPRIL [Concomitant]
  14. ATENOLOL [Concomitant]

REACTIONS (1)
  - Blood creatinine increased [None]
